FAERS Safety Report 20608128 (Version 1)
Quarter: 2022Q1

REPORT INFORMATION
  Report Type: Spontaneous
  Country: US (occurrence: None)
  Receive Date: 20220317
  Receipt Date: 20220317
  Transmission Date: 20220423
  Serious: No
  Sender: FDA-Public Use
  Company Number: None

PATIENT
  Age: 67 Year
  Sex: Male
  Weight: 89.81 kg

DRUGS (8)
  1. BOSULIF [Suspect]
     Active Substance: BOSUTINIB MONOHYDRATE
     Indication: Chronic myeloid leukaemia
     Dosage: FREQUENCY : DAILY;?
     Route: 048
     Dates: start: 20211127
  2. ACETAMINOPHEN [Concomitant]
     Active Substance: ACETAMINOPHEN
  3. FISH OIL [Concomitant]
     Active Substance: FISH OIL
  4. GABAPENTIN [Concomitant]
     Active Substance: GABAPENTIN
  5. LOSARTAN [Concomitant]
     Active Substance: LOSARTAN
  6. MELOXICAM [Concomitant]
     Active Substance: MELOXICAM
  7. VITAMINS [Concomitant]
     Active Substance: VITAMINS
  8. STOOL SOFTENER (DOCUSATE) [Concomitant]
     Active Substance: DOCUSATE

REACTIONS (1)
  - Disease progression [None]
